FAERS Safety Report 5276919-9 (Version None)
Quarter: 2007Q1

REPORT INFORMATION
  Report Type: 
  Country: None (occurrence: None)
  Receive Date: 20070327
  Receipt Date: 20070319
  Transmission Date: 20070707
  Serious: Yes (Other)
  Sender: FDA-Public Use
  Company Number: PHRM2007FR01063

PATIENT
  Age: 77 Year
  Sex: Female

DRUGS (5)
  1. ZOMETA [Suspect]
     Indication: METASTASES TO BONE
     Dosage: 4 MG, QMO
     Route: 042
     Dates: start: 20041201, end: 20060801
  2. FEMARA [Concomitant]
  3. NOLVADEX [Concomitant]
  4. ARIMIDEX [Concomitant]
  5. XELODA [Concomitant]

REACTIONS (4)
  - BONE FRAGMENTATION [None]
  - COMPUTERISED TOMOGRAM ABNORMAL [None]
  - OSTEONECROSIS [None]
  - TOOTH DISORDER [None]
